FAERS Safety Report 6898117-5 (Version None)
Quarter: 2010Q3

REPORT INFORMATION
  Report Type: 
  Country: None (occurrence: None)
  Receive Date: 20100802
  Receipt Date: 20070912
  Transmission Date: 20110219
  Serious: No
  Sender: FDA-Public Use
  Company Number: US-PFIZER INC-2007076233

PATIENT
  Sex: Female
  Weight: 63.636 kg

DRUGS (9)
  1. LYRICA [Suspect]
     Indication: PAIN IN EXTREMITY
     Dosage: 1 EVERY 1 SECONDS
     Route: 048
     Dates: start: 20070829
  2. LYRICA [Suspect]
     Indication: ARTHRALGIA
  3. ALL OTHER THERAPEUTIC PRODUCTS [Concomitant]
  4. TRAMADOL HYDROCHLORIDE [Concomitant]
  5. ZOCOR [Concomitant]
  6. DYAZIDE [Concomitant]
  7. FAMVIR [Concomitant]
  8. LEXAPRO [Concomitant]
  9. MULTI-VITAMINS [Concomitant]

REACTIONS (1)
  - SOMNOLENCE [None]
